FAERS Safety Report 16796215 (Version 2)
Quarter: 2019Q3

REPORT INFORMATION
  Report Type: Report from Study
  Country: US (occurrence: US)
  Receive Date: 20190911
  Receipt Date: 20190925
  Transmission Date: 20191005
  Serious: Yes (Hospitalization)
  Sender: FDA-Public Use
  Company Number: US-ACTELION-A-US2019-195297

PATIENT
  Age: 59 Year
  Sex: Female
  Weight: 270 kg

DRUGS (1)
  1. UPTRAVI [Suspect]
     Active Substance: SELEXIPAG
     Indication: PULMONARY ARTERIAL HYPERTENSION
     Dosage: 800 MCG, BID
     Route: 048

REACTIONS (7)
  - Migraine [Unknown]
  - Diarrhoea [Unknown]
  - Ear pain [Unknown]
  - Muscle spasms [Unknown]
  - Heart rate decreased [Unknown]
  - Sinusitis [Unknown]
  - Sputum discoloured [Unknown]

NARRATIVE: CASE EVENT DATE: 20190915
